FAERS Safety Report 21267450 (Version 3)
Quarter: 2022Q4

REPORT INFORMATION
  Report Type: Report from Study
  Country: ES (occurrence: None)
  Receive Date: 20220829
  Receipt Date: 20221013
  Transmission Date: 20230113
  Serious: Yes (Hospitalization)
  Sender: FDA-Public Use
  Company Number: ES-ROCHE-3167341

PATIENT
  Age: 69 Year
  Sex: Male
  Weight: 70 kg

DRUGS (15)
  1. ATEZOLIZUMAB [Suspect]
     Active Substance: ATEZOLIZUMAB
     Indication: Malignant melanoma
     Dosage: START DATE OF MOST RECENT DOSE (264 ML, DOSE CONCENTRATION: 3.36 MG/ML) OF STUDY DRUG?PRIOR TO AE 15
     Route: 041
     Dates: start: 20170824
  2. ATEZOLIZUMAB [Suspect]
     Active Substance: ATEZOLIZUMAB
     Indication: Malignant melanoma
  3. COBIMETINIB [Suspect]
     Active Substance: COBIMETINIB
     Indication: Malignant melanoma
     Dosage: DOSE LAST STUDY DRUG ADMIN PRIOR AE 20 MG DOSE LAST STUDY DRUG ADMIN PRIOR SAE 20 MG?START DATE OF M
     Route: 048
     Dates: start: 20170727
  4. VEMURAFENIB [Suspect]
     Active Substance: VEMURAFENIB
     Indication: Malignant melanoma
     Dosage: 168 TABLET,  START DATE OF MOST RECENT DOSE OF STUDY DRUG?PRIOR TO AE 20-JUL-2022  START DATE OF MOS
     Route: 048
     Dates: start: 20170727
  5. ENALAPRIL [Concomitant]
     Active Substance: ENALAPRIL
     Indication: Hypertension
     Route: 048
     Dates: end: 20220721
  6. METHIMAZOLE [Concomitant]
     Active Substance: METHIMAZOLE
     Indication: Hyperthyroidism
     Dates: start: 20201030
  7. LEVOTHYROXINE [Concomitant]
     Active Substance: LEVOTHYROXINE
     Indication: Hypothyroidism
     Dates: start: 20210715
  8. METHYLPREDNISOLONE [Concomitant]
     Active Substance: METHYLPREDNISOLONE
     Dosage: 22/08,23/08,24/08
     Route: 042
  9. FERROUS GLUCONATE [Concomitant]
     Active Substance: FERROUS GLUCONATE
     Indication: Anaemia
     Route: 048
     Dates: start: 20220623
  10. SODIUM DIHYDROGEN PHOSPHATE MONOHYDRATE [Concomitant]
     Indication: Anaemia
     Route: 048
     Dates: start: 20220623, end: 20220901
  11. LEVOTHYROXINE SODIUM [Concomitant]
     Active Substance: LEVOTHYROXINE SODIUM
     Indication: Hypothyroidism
     Route: 048
     Dates: start: 20220825
  12. EPOETIN BETA [Concomitant]
     Active Substance: ERYTHROPOIETIN
     Indication: Anaemia
     Route: 030
     Dates: start: 20220822
  13. CALCIO CARBONATO [Concomitant]
     Indication: Prophylaxis
     Route: 048
     Dates: start: 20220822
  14. CHOLECALCIFEROL [Concomitant]
     Active Substance: CHOLECALCIFEROL
     Indication: Prophylaxis
     Route: 048
     Dates: start: 20220822
  15. IRON [Concomitant]
     Active Substance: IRON
     Indication: Anaemia
     Route: 048
     Dates: start: 20201029

REACTIONS (1)
  - Acute kidney injury [Recovering/Resolving]

NARRATIVE: CASE EVENT DATE: 20220820
